FAERS Safety Report 5509978-6 (Version None)
Quarter: 2007Q4

REPORT INFORMATION
  Report Type: 
  Country: None (occurrence: None)
  Receive Date: 20071108
  Receipt Date: 20070115
  Transmission Date: 20080405
  Serious: No
  Sender: FDA-Public Use
  Company Number: US-ABBOTT-07P-163-0356203-00

PATIENT
  Sex: Male
  Weight: 79.904 kg

DRUGS (1)
  1. CLARITHROMYCIN 500MG TABLETS [Suspect]
     Indication: LYME DISEASE
     Dosage: 2 TABS QD
     Route: 048
     Dates: start: 20061201, end: 20070113

REACTIONS (6)
  - ABDOMINAL PAIN UPPER [None]
  - DECREASED APPETITE [None]
  - DYSGEUSIA [None]
  - INSOMNIA [None]
  - MOOD ALTERED [None]
  - NAUSEA [None]
